FAERS Safety Report 6411698-0 (Version None)
Quarter: 2009Q4

REPORT INFORMATION
  Report Type: 
  Country: None (occurrence: None)
  Receive Date: 20091023
  Receipt Date: 20091014
  Transmission Date: 20100525
  Serious: Yes (Other)
  Sender: FDA-Public Use
  Company Number: PHHY2009BR44425

PATIENT
  Age: 57 Year
  Sex: Male

DRUGS (2)
  1. COMTAN [Suspect]
     Indication: PARKINSON'S DISEASE
     Dosage: 800 MG DAILY
     Route: 048
     Dates: start: 20090819, end: 20091007
  2. CARBIDOPA AND LEVODOPA [Concomitant]
     Dosage: 3 TABLETS DAILY

REACTIONS (2)
  - SKIN EXFOLIATION [None]
  - SKIN LESION [None]
